FAERS Safety Report 5097045-8 (Version None)
Quarter: 2006Q3

REPORT INFORMATION
  Report Type: 
  Country: None (occurrence: None)
  Receive Date: 20060901
  Receipt Date: 20060821
  Transmission Date: 20061208
  Serious: Yes (Other)
  Sender: FDA-Public Use
  Company Number: 2006102934

PATIENT
  Age: 35 Year
  Sex: Female
  Weight: 52 kg

DRUGS (3)
  1. LYRICA [Suspect]
     Indication: NEURALGIA
     Dosage: (150 MG), ORAL
     Route: 048
     Dates: start: 20050420
  2. AMITRIPTYLINE HCL [Concomitant]
  3. ACETAMINOPHEN [Concomitant]

REACTIONS (4)
  - DRY SKIN [None]
  - LOCALISED INFECTION [None]
  - PAIN [None]
  - SKIN EXFOLIATION [None]
